FAERS Safety Report 8604544-8 (Version None)
Quarter: 2012Q3

REPORT INFORMATION
  Report Type: 
  Country: None (occurrence: None)
  Receive Date: 20120820
  Receipt Date: 20120814
  Transmission Date: 20120928
  Serious: No
  Sender: FDA-Public Use
  Company Number: US-BAYER-2012-084601

PATIENT

DRUGS (1)
  1. ALEVE (CAPLET) [Suspect]
     Indication: FEELING OF RELAXATION
     Dosage: 8 DF, QD
     Route: 048
     Dates: start: 20120814, end: 20120814

REACTIONS (1)
  - NO ADVERSE EVENT [None]
